FAERS Safety Report 4386230-6 (Version None)
Quarter: 2004Q2

REPORT INFORMATION
  Report Type: 
  Country: None (occurrence: None)
  Receive Date: 20040629
  Receipt Date: 20040524
  Transmission Date: 20050107
  Serious: No
  Sender: FDA-Public Use
  Company Number: US-BRISTOL-MYERS SQUIBB COMPANY-12594503

PATIENT
  Age: 46 Year
  Sex: Male
  Weight: 98 kg

DRUGS (1)
  1. TESLAC [Suspect]
     Indication: HORMONE LEVEL ABNORMAL
     Route: 048

REACTIONS (4)
  - DRY SKIN [None]
  - ERYTHEMA [None]
  - EYE REDNESS [None]
  - THROAT TIGHTNESS [None]
